FAERS Safety Report 6233407-0 (Version None)
Quarter: 2009Q2

REPORT INFORMATION
  Report Type: 
  Country: None (occurrence: None)
  Receive Date: 20090617
  Receipt Date: 20080925
  Transmission Date: 20091009
  Serious: No
  Sender: FDA-Public Use
  Company Number: US-TYCO HEALTHCARE/MALLINCKRODT-T200801584

PATIENT

DRUGS (2)
  1. ULTRATAG [Suspect]
     Indication: RADIOISOTOPE SCAN
     Dosage: UNK, SINGLE
     Route: 042
     Dates: start: 20080923, end: 20080923
  2. ULTRA-TECHNEKOW [Concomitant]
     Indication: RADIOISOTOPE SCAN
     Dosage: UNK, SINGLE
     Route: 042
     Dates: start: 20080923, end: 20080923

REACTIONS (1)
  - DRUG INEFFECTIVE [None]
